FAERS Safety Report 7644284-5 (Version None)
Quarter: 2011Q3

REPORT INFORMATION
  Report Type: 
  Country: None (occurrence: None)
  Receive Date: 20110729
  Receipt Date: 20110729
  Transmission Date: 20111222
  Serious: Yes (Other)
  Sender: FDA-Public Use
  Company Number: TR-PFIZER INC-2011172904

PATIENT
  Age: 25 Year
  Sex: Female

DRUGS (1)
  1. VARENICLINE TARTRATE [Suspect]
     Dosage: UNK
     Route: 048
     Dates: start: 20110723, end: 20110727

REACTIONS (5)
  - ASPHYXIA [None]
  - HYPERSENSITIVITY [None]
  - SWELLING FACE [None]
  - WOUND [None]
  - ERYTHEMA [None]
